FAERS Safety Report 21356730 (Version 3)
Quarter: 2022Q4

REPORT INFORMATION
  Report Type: Spontaneous
  Country: JP (occurrence: JP)
  Receive Date: 20220920
  Receipt Date: 20221220
  Transmission Date: 20230112
  Serious: Yes (Hospitalization)
  Sender: FDA-Public Use
  Company Number: JP-dspharma-2022SMP008863AA

PATIENT
  Age: 77 Year
  Sex: Male
  Weight: 44.6 kg

DRUGS (12)
  1. LATUDA [Suspect]
     Active Substance: LURASIDONE HYDROCHLORIDE
     Indication: Bipolar I disorder
     Dosage: 20 MG, QD
     Route: 048
     Dates: start: 20220729, end: 20220804
  2. LATUDA [Suspect]
     Active Substance: LURASIDONE HYDROCHLORIDE
     Dosage: 40 MG, QD
     Route: 048
     Dates: start: 20220805, end: 20220815
  3. LITHIUM CARBONATE [Suspect]
     Active Substance: LITHIUM CARBONATE
     Indication: Bipolar I disorder
     Dosage: 200 MG, TID
     Route: 048
     Dates: start: 20220719, end: 20220728
  4. LITHIUM CARBONATE [Suspect]
     Active Substance: LITHIUM CARBONATE
     Dosage: 200 MG, QID
     Route: 048
     Dates: start: 20220729, end: 20220815
  5. LITHIUM CARBONATE [Suspect]
     Active Substance: LITHIUM CARBONATE
     Dosage: 100 MG, QID
     Route: 048
     Dates: start: 20220816, end: 20220818
  6. OLANZAPINE [Concomitant]
     Active Substance: OLANZAPINE
     Indication: Depressive symptom
     Dosage: 10 MG, QD
     Route: 048
     Dates: start: 20220614, end: 20220728
  7. OLANZAPINE [Concomitant]
     Active Substance: OLANZAPINE
     Indication: Delusion
     Dosage: 5 MG, QD
     Route: 048
     Dates: start: 20220624, end: 20220724
  8. OLANZAPINE [Concomitant]
     Active Substance: OLANZAPINE
     Dosage: 2.5 MG, QD
     Route: 048
     Dates: start: 20220715
  9. OLANZAPINE [Concomitant]
     Active Substance: OLANZAPINE
     Dosage: 5 MG, QD
     Route: 048
     Dates: start: 20220729, end: 20220804
  10. OLANZAPINE [Concomitant]
     Active Substance: OLANZAPINE
     Dosage: 5 MG, QD
     Route: 048
     Dates: start: 20220816, end: 20220818
  11. OLANZAPINE [Concomitant]
     Active Substance: OLANZAPINE
     Dosage: 10 MG, QD
     Route: 048
     Dates: start: 20220819
  12. AMLODIPINE BESYLATE [Concomitant]
     Active Substance: AMLODIPINE BESYLATE
     Indication: Blood pressure increased
     Dosage: 5 MG, QD
     Route: 048
     Dates: start: 20220816

REACTIONS (2)
  - Drug eruption [Recovered/Resolved]
  - Parkinsonism [Unknown]

NARRATIVE: CASE EVENT DATE: 20220812
